FAERS Safety Report 6031555-1 (Version None)
Quarter: 2009Q1

REPORT INFORMATION
  Report Type: 
  Country: None (occurrence: None)
  Receive Date: 20090108
  Receipt Date: 20090105
  Transmission Date: 20090719
  Serious: Yes (Hospitalization)
  Sender: FDA-Public Use
  Company Number: FR-PFIZER INC-2009151027

PATIENT

DRUGS (4)
  1. SALAZOPYRIN [Suspect]
     Indication: POLYARTHRITIS
     Route: 048
     Dates: start: 20081015, end: 20081031
  2. BREXIN [Suspect]
     Route: 048
     Dates: start: 20081001, end: 20081031
  3. KETOPROFEN [Concomitant]
  4. PREDNISONE [Concomitant]

REACTIONS (1)
  - DRUG RASH WITH EOSINOPHILIA AND SYSTEMIC SYMPTOMS [None]
